FAERS Safety Report 23064296 (Version 1)
Quarter: 2023Q4

REPORT INFORMATION
  Report Type: Spontaneous
  Country: US (occurrence: US)
  Receive Date: 20231013
  Receipt Date: 20231013
  Transmission Date: 20240109
  Serious: No
  Sender: FDA-Public Use
  Company Number: US-Blueprint Medicines Corporation-SP-US-2023-001586

PATIENT
  Sex: Female

DRUGS (3)
  1. AYVAKIT [Suspect]
     Active Substance: AVAPRITINIB
     Indication: Systemic mastocytosis
     Route: 048
     Dates: start: 20230817
  2. AYVAKIT [Suspect]
     Active Substance: AVAPRITINIB
     Dosage: HALF A TABLET
     Route: 048
     Dates: start: 20230817
  3. AYVAKIT [Suspect]
     Active Substance: AVAPRITINIB
     Dosage: QUARTER THE TABLETS
     Route: 048
     Dates: start: 20230817

REACTIONS (9)
  - Diarrhoea [Unknown]
  - Hyperhidrosis [Unknown]
  - Adverse drug reaction [Unknown]
  - Pain [Unknown]
  - Vitamin B1 decreased [Unknown]
  - Vitamin D decreased [Unknown]
  - Liver disorder [Unknown]
  - Spleen disorder [Unknown]
  - Spider vein [Unknown]
